FAERS Safety Report 6006796-X (Version None)
Quarter: 2008Q4

REPORT INFORMATION
  Report Type: 
  Country: None (occurrence: None)
  Receive Date: 20081217
  Receipt Date: 20081017
  Transmission Date: 20090506
  Serious: No
  Sender: FDA-Public Use
  Company Number: US-ASTRAZENECA-2004UW09298

PATIENT
  Age: 73 Year
  Sex: Female
  Weight: 45.4 kg

DRUGS (11)
  1. CRESTOR [Suspect]
     Indication: HYPERCHOLESTEROLAEMIA
     Route: 048
     Dates: start: 20040428
  2. ADVAIR DISKUS 250/50 [Concomitant]
  3. ENALAPRIL MALEATE [Concomitant]
  4. HYDROCHLOROTHIAZIDE [Concomitant]
  5. ASPIRIN [Concomitant]
  6. BEXTRA [Concomitant]
  7. ZOMIG [Concomitant]
  8. LISINOPRIL [Concomitant]
  9. AMLODIPINE [Concomitant]
  10. PRILOSEC [Concomitant]
  11. ZOLTAREDEN [Concomitant]

REACTIONS (3)
  - ASTHENIA [None]
  - PAIN [None]
  - PAIN IN EXTREMITY [None]
